FAERS Safety Report 4901706-8 (Version None)
Quarter: 2006Q1

REPORT INFORMATION
  Report Type: 
  Country: None (occurrence: None)
  Receive Date: 20060206
  Receipt Date: 20051130
  Transmission Date: 20060701
  Serious: Yes (Hospitalization)
  Sender: FDA-Public Use
  Company Number: US-BRISTOL-MYERS SQUIBB COMPANY-13199740

PATIENT
  Sex: Female

DRUGS (4)
  1. TAXOL [Suspect]
     Indication: LUNG NEOPLASM MALIGNANT
     Route: 042
  2. DEXAMETHASONE TAB [Concomitant]
     Indication: PREMEDICATION
  3. CIMETIDINE [Concomitant]
     Indication: PREMEDICATION
  4. BENADRYL [Concomitant]
     Indication: PREMEDICATION

REACTIONS (4)
  - OEDEMA MOUTH [None]
  - SWELLING FACE [None]
  - SWOLLEN TONGUE [None]
  - THROAT TIGHTNESS [None]
